FAERS Safety Report 5166329-7 (Version None)
Quarter: 2006Q4

REPORT INFORMATION
  Report Type: 
  Country: None (occurrence: None)
  Receive Date: 20061129
  Receipt Date: 20061115
  Transmission Date: 20070319
  Serious: Yes (Other)
  Sender: FDA-Public Use
  Company Number: 200410505BBE

PATIENT
  Sex: Female

DRUGS (10)
  1. HYPRHO-D [Suspect]
     Indication: PREGNANCY
  2. IMMUNE GLOBULIN (HUMAN) [Suspect]
  3. IMMUNE GLOBULIN (HUMAN) [Suspect]
  4. IMMUNE GLOBULIN (HUMAN) [Suspect]
  5. IMMUNE GLOBULIN (HUMAN) [Suspect]
  6. IMMUNE GLOBULIN (HUMAN) [Suspect]
  7. IMMUNE GLOBULIN (HUMAN) [Suspect]
  8. IMMUNE GLOBULIN (HUMAN) [Suspect]
  9. INJECTABLE GLOBULIN (IMMUNOGLOBULIN HUMAN NORMAL) [Suspect]
  10. IMMUNE GLOBULIN (HUMAN) [Suspect]

REACTIONS (10)
  - ATTENTION DEFICIT/HYPERACTIVITY DISORDER [None]
  - AUTISM [None]
  - DRUG EXPOSURE DURING PREGNANCY [None]
  - DRUG INEFFECTIVE [None]
  - FORCEPS DELIVERY [None]
  - MECONIUM IN AMNIOTIC FLUID [None]
  - METAL POISONING [None]
  - NEUROTOXICITY [None]
  - RESPIRATORY TRACT INFECTION [None]
  - VACUUM EXTRACTOR DELIVERY [None]
